FAERS Safety Report 18284184 (Version 1)
Quarter: 2020Q3

REPORT INFORMATION
  Report Type: Spontaneous
  Country: RU (occurrence: RU)
  Receive Date: 20200918
  Receipt Date: 20200918
  Transmission Date: 20201103
  Serious: Yes (Death)
  Sender: FDA-Public Use
  Company Number: RU-ASTRAZENECA-2020SF19926

PATIENT
  Sex: Male

DRUGS (2)
  1. LYNPARZA [Suspect]
     Active Substance: OLAPARIB
     Indication: ADENOSQUAMOUS CELL LUNG CANCER
     Route: 048
     Dates: start: 201909, end: 202009
  2. IMFINZI [Suspect]
     Active Substance: DURVALUMAB
     Indication: ADENOSQUAMOUS CELL LUNG CANCER
     Dosage: 1500.0MG AS REQUIRED
     Route: 042
     Dates: start: 201909, end: 202009

REACTIONS (4)
  - Anaemia folate deficiency [Unknown]
  - Metastases to central nervous system [Fatal]
  - Off label use [Unknown]
  - Iron deficiency anaemia [Unknown]
